FAERS Safety Report 24077789 (Version 2)
Quarter: 2024Q3

REPORT INFORMATION
  Report Type: Spontaneous
  Country: TR (occurrence: TR)
  Receive Date: 20240711
  Receipt Date: 20240719
  Transmission Date: 20241016
  Serious: No
  Sender: NOVARTIS
  Company Number: TR-002147023-NVSC2024TR127184

PATIENT

DRUGS (1)
  1. RIBOCICLIB [Suspect]
     Active Substance: RIBOCICLIB
     Indication: Product used for unknown indication
     Dosage: 600 MG, QD (21 DAY USAGE 7 DAYS BRAKE)
     Route: 048
     Dates: start: 20240403

REACTIONS (1)
  - Diplopia [Unknown]

NARRATIVE: CASE EVENT DATE: 20240501
